FAERS Safety Report 8302339-6 (Version None)
Quarter: 2012Q2

REPORT INFORMATION
  Report Type: 
  Country: None (occurrence: None)
  Receive Date: 20120420
  Receipt Date: 20120413
  Transmission Date: 20120825
  Serious: Yes (Death)
  Sender: FDA-Public Use
  Company Number: US-ALLERGAN-1114952US

PATIENT
  Age: 18 Year
  Sex: Male

DRUGS (3)
  1. BACTRIM DS [Concomitant]
     Indication: ACNE
     Dosage: 1 DF, BID
     Route: 048
  2. XIANA [Concomitant]
     Indication: ACNE
     Route: 061
  3. ACZONE [Suspect]
     Indication: ACNE
     Dosage: APPLY AS DIRECTED
     Route: 061
     Dates: start: 20110627, end: 20111020

REACTIONS (1)
  - COMPLETED SUICIDE [None]
